FAERS Safety Report 10064111 (Version 1)
Quarter: 2014Q2

REPORT INFORMATION
  Report Type: Spontaneous
  Country: US (occurrence: None)
  Receive Date: 20140404
  Receipt Date: 20140404
  Transmission Date: 20141212
  Serious: Yes (Death)
  Sender: FDA-Public Use
  Company Number: UTC-046063

PATIENT
  Age: 72 Year
  Sex: Male

DRUGS (1)
  1. TYVASO [Suspect]
     Indication: PULMONARY ARTERIAL HYPERTENSION
     Dosage: 4 IN 1 D, INHALATION
     Route: 055
     Dates: start: 20130719

REACTIONS (2)
  - Pulmonary arterial hypertension [None]
  - Disease progression [None]
